FAERS Safety Report 6811040-7 (Version None)
Quarter: 2010Q2

REPORT INFORMATION
  Report Type: 
  Country: None (occurrence: None)
  Receive Date: 20100630
  Receipt Date: 20090120
  Transmission Date: 20101027
  Serious: No
  Sender: FDA-Public Use
  Company Number: US-PFIZER INC-2009158348

PATIENT
  Sex: Female
  Weight: 68.038 kg

DRUGS (4)
  1. ESTRING [Suspect]
     Indication: MIGRAINE
     Dosage: 2 MG, EVERY 3 MONTHS
  2. ZETIA [Concomitant]
     Dosage: UNK
  3. AMLODIPINE BESILATE [Concomitant]
     Dosage: UNK
  4. CHLORTHALIDONE [Concomitant]
     Dosage: UNK

REACTIONS (2)
  - ABDOMINAL PAIN [None]
  - DRUG INEFFECTIVE [None]
